FAERS Safety Report 18246196 (Version 2)
Quarter: 2020Q3

REPORT INFORMATION
  Report Type: Spontaneous
  Country: US (occurrence: US)
  Receive Date: 20200909
  Receipt Date: 20200917
  Transmission Date: 20201103
  Serious: Yes (Death, Hospitalization, Other)
  Sender: FDA-Public Use
  Company Number: US-PFIZER INC-9719784

PATIENT
  Age: 38 Year
  Sex: Female

DRUGS (2)
  1. DIABINESE [Suspect]
     Active Substance: CHLORPROPAMIDE
     Dosage: UNK
     Route: 048
  2. TYLENOL WITH CODEINE [Suspect]
     Active Substance: ACETAMINOPHEN\CODEINE PHOSPHATE
     Indication: PAIN
     Dosage: UNK, (EVERY 3 TO 4H WITHOUT RELIEF)

REACTIONS (5)
  - Accidental overdose [Fatal]
  - Coma [Fatal]
  - Pneumonia [Fatal]
  - Hypoglycaemia [Fatal]
  - Product dispensing error [Fatal]
